FAERS Safety Report 8598180-X (Version None)
Quarter: 2012Q3

REPORT INFORMATION
  Report Type: 
  Country: None (occurrence: None)
  Receive Date: 20120816
  Receipt Date: 20120810
  Transmission Date: 20120928
  Serious: Yes (Other)
  Sender: FDA-Public Use
  Company Number: DE-SANOFI-AVENTIS-2012SA057756

PATIENT
  Age: 71 Year
  Sex: Male
  Weight: 80 kg

DRUGS (7)
  1. GRANISETRON HYDROCHLORIDE [Concomitant]
     Dates: start: 20120101
  2. JEVTANA KIT [Suspect]
     Route: 051
     Dates: start: 20120523, end: 20120523
  3. EPOETIN NOS [Concomitant]
     Dates: start: 20120101
  4. NEULASTA [Concomitant]
     Dates: start: 20120101
  5. JEVTANA KIT [Suspect]
     Route: 051
     Dates: start: 20120502, end: 20120502
  6. PREDNISOLONE [Concomitant]
     Indication: PREMEDICATION
     Route: 065
     Dates: start: 20120101
  7. IBANDRONATE SODIUM [Concomitant]
     Dates: start: 20120101

REACTIONS (1)
  - THROMBOTIC THROMBOCYTOPENIC PURPURA [None]
